FAERS Safety Report 7570151-1 (Version None)
Quarter: 2011Q2

REPORT INFORMATION
  Report Type: 
  Country: None (occurrence: None)
  Receive Date: 20110624
  Receipt Date: 20110610
  Transmission Date: 20111010
  Serious: Yes (Other)
  Sender: FDA-Public Use
  Company Number: IN-RANBAXY-2011RR-44318

PATIENT
  Age: 37 Year
  Sex: Male

DRUGS (5)
  1. MYCOPHENOLATE MEFETIL [Suspect]
     Dosage: 2000 MG, UNK
  2. PREDNISOLONE [Concomitant]
     Indication: IMMUNOSUPPRESSION
  3. MYCOPHENOLATE MEFETIL [Suspect]
     Indication: IMMUNOSUPPRESSION
     Dosage: 2250 MG, UNK
  4. TACROLIMUS [Concomitant]
     Indication: IMMUNOSUPPRESSION
  5. AMPICILLIN SODIUM/SULBACTAM SODIUM [Suspect]
     Indication: LOWER RESPIRATORY TRACT INFECTION

REACTIONS (2)
  - DRUG LEVEL DECREASED [None]
  - DRUG INTERACTION [None]
